FAERS Safety Report 26113766 (Version 1)
Quarter: 2025Q4

REPORT INFORMATION
  Report Type: Spontaneous
  Country: EU (occurrence: EU)
  Receive Date: 20251202
  Receipt Date: 20251202
  Transmission Date: 20260117
  Serious: Yes (Other)
  Sender: MYLAN
  Company Number: EU-MYLANLABS-2025M1103025

PATIENT
  Age: 8 Year

DRUGS (16)
  1. GABAPENTIN [Suspect]
     Active Substance: GABAPENTIN
     Indication: Phantom limb syndrome
     Dosage: UNK
  2. GABAPENTIN [Suspect]
     Active Substance: GABAPENTIN
     Dosage: UNK
     Route: 065
  3. GABAPENTIN [Suspect]
     Active Substance: GABAPENTIN
     Dosage: UNK
     Route: 065
  4. GABAPENTIN [Suspect]
     Active Substance: GABAPENTIN
     Dosage: UNK
  5. DULOXETINE [Suspect]
     Active Substance: DULOXETINE
     Indication: Phantom limb syndrome
     Dosage: UNK
  6. DULOXETINE [Suspect]
     Active Substance: DULOXETINE
     Indication: Major depression
     Dosage: UNK
     Route: 065
  7. DULOXETINE [Suspect]
     Active Substance: DULOXETINE
     Dosage: UNK
     Route: 065
  8. DULOXETINE [Suspect]
     Active Substance: DULOXETINE
     Dosage: UNK
  9. PREGABALIN [Suspect]
     Active Substance: PREGABALIN
     Indication: Phantom limb syndrome
     Dosage: UNK
  10. PREGABALIN [Suspect]
     Active Substance: PREGABALIN
     Dosage: UNK
     Route: 065
  11. PREGABALIN [Suspect]
     Active Substance: PREGABALIN
     Dosage: UNK
     Route: 065
  12. PREGABALIN [Suspect]
     Active Substance: PREGABALIN
     Dosage: UNK
  13. ACETAMINOPHEN [Suspect]
     Active Substance: ACETAMINOPHEN
     Indication: Phantom limb syndrome
     Dosage: UNK
  14. ACETAMINOPHEN [Suspect]
     Active Substance: ACETAMINOPHEN
     Dosage: UNK
     Route: 065
  15. ACETAMINOPHEN [Suspect]
     Active Substance: ACETAMINOPHEN
     Dosage: UNK
     Route: 065
  16. ACETAMINOPHEN [Suspect]
     Active Substance: ACETAMINOPHEN
     Dosage: UNK

REACTIONS (2)
  - Drug ineffective [Unknown]
  - Off label use [Unknown]
